FAERS Safety Report 6668052-6 (Version None)
Quarter: 2010Q2

REPORT INFORMATION
  Report Type: 
  Country: None (occurrence: None)
  Receive Date: 20100405
  Receipt Date: 20100326
  Transmission Date: 20101027
  Serious: Yes (Other)
  Sender: FDA-Public Use
  Company Number: CN-GENENTECH-299839

PATIENT
  Age: 69 Year
  Sex: Female
  Weight: 60 kg

DRUGS (2)
  1. MABTHERA [Suspect]
     Indication: THROMBOCYTOPENIC PURPURA
     Dosage: 500 MG,  Q3W
     Route: 041
     Dates: start: 20100317
  2. PREDNISOLONE [Concomitant]
     Indication: THROMBOCYTOPENIC PURPURA
     Dosage: UNK
     Route: 041

REACTIONS (2)
  - PLATELET COUNT DECREASED [None]
  - SOMNOLENCE [None]
